FAERS Safety Report 12254704 (Version 14)
Quarter: 2018Q4

REPORT INFORMATION
  Report Type: Report from Study
  Country: US (occurrence: US)
  Receive Date: 20160411
  Receipt Date: 20181129
  Transmission Date: 20190204
  Serious: Yes (Death, Life-Threatening, Hospitalization, Other)
  Sender: FDA-Public Use
  Company Number: US-ACTELION-A-US2015-128043

PATIENT
  Age: 73 Year
  Sex: Female

DRUGS (12)
  1. LEVOTHYROXINE. [Concomitant]
     Active Substance: LEVOTHYROXINE
  2. OPSUMIT [Suspect]
     Active Substance: MACITENTAN
     Indication: PULMONARY ARTERIAL HYPERTENSION
     Dosage: 10 MG, QD
     Route: 048
     Dates: start: 20150805, end: 20160830
  3. METOPROLOL. [Concomitant]
     Active Substance: METOPROLOL
     Dosage: UNK
  4. PREDNISOLONE. [Concomitant]
     Active Substance: PREDNISOLONE
  5. REVATIO [Concomitant]
     Active Substance: SILDENAFIL CITRATE
     Dosage: 40 MG, TID
  6. LIPITOR [Concomitant]
     Active Substance: ATORVASTATIN CALCIUM
     Dosage: UNK
  7. OLANZAPINE. [Concomitant]
     Active Substance: OLANZAPINE
  8. ZOLPIDEM [Concomitant]
     Active Substance: ZOLPIDEM\ZOLPIDEM TARTRATE
     Dosage: UNK
  9. TRAVATAN Z [Concomitant]
     Active Substance: TRAVOPROST
     Dosage: UNK
  10. TREPROSTINIL DIOLAMIN [Concomitant]
     Active Substance: TREPROSTINIL DIOLAMINE
     Dosage: UNK
  11. TORSEMIDE. [Concomitant]
     Active Substance: TORSEMIDE
     Dosage: UNK
  12. SILDENAFIL. [Concomitant]
     Active Substance: SILDENAFIL

REACTIONS (28)
  - Transfusion [Unknown]
  - Asthenia [Unknown]
  - Palliative care [Unknown]
  - Renal failure [Unknown]
  - Cardiac failure [Recovered/Resolved]
  - Dehydration [Not Recovered/Not Resolved]
  - Respiratory failure [Unknown]
  - Arrhythmia [Not Recovered/Not Resolved]
  - Weight increased [Recovered/Resolved]
  - Cardiac failure congestive [Recovered/Resolved]
  - Fluid overload [Recovering/Resolving]
  - Pleural effusion [Recovered/Resolved]
  - Terminal state [Not Recovered/Not Resolved]
  - Fluid retention [Recovered/Resolved]
  - Oxygen saturation decreased [Recovered/Resolved]
  - Chest pain [Recovered/Resolved]
  - Hypotension [Recovered/Resolved]
  - Dizziness [Recovering/Resolving]
  - Syncope [Fatal]
  - Pulmonary oedema [Not Recovered/Not Resolved]
  - Intestinal obstruction [Unknown]
  - Fatigue [Not Recovered/Not Resolved]
  - Hypoxia [Recovering/Resolving]
  - Cyanosis [Fatal]
  - Dyspnoea [Fatal]
  - Muscular weakness [Recovered/Resolved]
  - Pulmonary fibrosis [Unknown]
  - Dyspepsia [Unknown]

NARRATIVE: CASE EVENT DATE: 20151112
